FAERS Safety Report 7307604-7 (Version None)
Quarter: 2011Q1

REPORT INFORMATION
  Report Type: 
  Country: None (occurrence: None)
  Receive Date: 20110223
  Receipt Date: 20110223
  Transmission Date: 20110831
  Serious: Yes (Life-Threatening)
  Sender: FDA-Public Use
  Company Number: None

PATIENT
  Age: 67 Year
  Sex: Male
  Weight: 83.9154 kg

DRUGS (1)
  1. CARE ONE ALCOHOL SWABS 70% ALCOHOL TRIAD GROUP [Suspect]
     Indication: THERAPEUTIC SKIN CARE TOPICAL
     Dosage: 1 PACKET TWICE A DAY OTHER
     Route: 050
     Dates: start: 20101215, end: 20110107

REACTIONS (2)
  - SKIN DISCOLOURATION [None]
  - TOE AMPUTATION [None]
